FAERS Safety Report 15092830 (Version 1)
Quarter: 2018Q2

REPORT INFORMATION
  Report Type: Spontaneous
  Country: HR (occurrence: HR)
  Receive Date: 20180629
  Receipt Date: 20180629
  Transmission Date: 20180711
  Serious: Yes (Hospitalization)
  Sender: FDA-Public Use
  Company Number: HR-JNJFOC-20180634318

PATIENT
  Age: 69 Year
  Sex: Male

DRUGS (5)
  1. CARVEDILOL. [Concomitant]
     Active Substance: CARVEDILOL
     Route: 065
  2. LORSILAN [Concomitant]
     Active Substance: LORAZEPAM
     Route: 065
  3. FLOSIN [Concomitant]
     Active Substance: TAMSULOSIN
     Route: 065
  4. XARELTO [Suspect]
     Active Substance: RIVAROXABAN
     Indication: ATRIAL FIBRILLATION
     Route: 048
     Dates: start: 201803
  5. LANITOP [Concomitant]
     Active Substance: METILDIGOXIN
     Route: 065

REACTIONS (3)
  - Cerebral artery embolism [Unknown]
  - Contusion [Unknown]
  - Skin abrasion [Unknown]

NARRATIVE: CASE EVENT DATE: 201806
